FAERS Safety Report 20301668 (Version 1)
Quarter: 2022Q1

REPORT INFORMATION
  Report Type: Spontaneous
  Country: None (occurrence: US)
  Receive Date: 20220105
  Receipt Date: 20220105
  Transmission Date: 20220423
  Serious: Yes (Other)
  Sender: FDA-Public Use
  Company Number: US-Guthy-Renker, LLC-2123646

PATIENT
  Age: 52 Year
  Sex: Female

DRUGS (1)
  1. J LO BEAUTY THAT BIG SCREEN SPF 30 [Suspect]
     Active Substance: HOMOSALATE\OCTISALATE\ZINC OXIDE
     Indication: Prophylaxis against solar radiation
     Route: 061
     Dates: start: 20211202, end: 20211202

REACTIONS (1)
  - Hypersensitivity [Recovered/Resolved]

NARRATIVE: CASE EVENT DATE: 20211202
